FAERS Safety Report 19771234 (Version 1)
Quarter: 2021Q3

REPORT INFORMATION
  Report Type: Spontaneous
  Country: US (occurrence: US)
  Receive Date: 20210830
  Receipt Date: 20210830
  Transmission Date: 20211014
  Serious: No
  Sender: FDA-Public Use
  Company Number: None

PATIENT
  Age: 62 Year
  Sex: Female

DRUGS (1)
  1. IBRANCE [Suspect]
     Active Substance: PALBOCICLIB
     Indication: BREAST CANCER FEMALE
     Dosage: OTHER FREQUENCY:DAILY X 21DAYS;?
     Route: 048

REACTIONS (6)
  - Drug ineffective [None]
  - Gastrointestinal disorder [None]
  - Renal disorder [None]
  - Fall [None]
  - Therapy cessation [None]
  - Flank pain [None]

NARRATIVE: CASE EVENT DATE: 202107
